FAERS Safety Report 9397903 (Version 3)
Quarter: 2013Q3

REPORT INFORMATION
  Report Type: Spontaneous
  Country: US (occurrence: None)
  Receive Date: 20130709
  Receipt Date: 20130904
  Transmission Date: 20140515
  Serious: Yes (Death, Hospitalization)
  Sender: FDA-Public Use
  Company Number: 2013AP006453

PATIENT
  Age: 22 Year
  Sex: Male
  Weight: 59.1 kg

DRUGS (8)
  1. FERRIPROX [Suspect]
     Indication: SICKLE CELL ANAEMIA
     Route: 048
     Dates: start: 201209, end: 201306
  2. FERRIPROX [Suspect]
     Indication: HAEMOCHROMATOSIS
     Route: 048
     Dates: start: 201209, end: 201306
  3. EXJADE [Concomitant]
  4. ALBUTEROL [Concomitant]
  5. IBUPROFEN [Concomitant]
  6. OCULAR LUBRICANT [Concomitant]
  7. RANITIDINE [Concomitant]
  8. SODIUM CHLORIDE [Concomitant]

REACTIONS (5)
  - Treatment noncompliance [None]
  - Oedema [None]
  - Multi-organ failure [None]
  - Disseminated intravascular coagulation [None]
  - Renal failure [None]
